FAERS Safety Report 5386161-9 (Version None)
Quarter: 2007Q3

REPORT INFORMATION
  Report Type: 
  Country: None (occurrence: None)
  Receive Date: 20070711
  Receipt Date: 20070711
  Transmission Date: 20080115
  Serious: No
  Sender: FDA-Public Use
  Company Number: None

PATIENT
  Sex: Male
  Weight: 182.346 kg

DRUGS (1)
  1. OXYCONTIN [Suspect]
     Indication: PAIN
     Dosage: 80MG 6X DAILY PO
     Route: 048
     Dates: start: 20070507

REACTIONS (2)
  - STOMACH DISCOMFORT [None]
  - VOMITING [None]
